FAERS Safety Report 12884978 (Version 1)
Quarter: 2016Q4

REPORT INFORMATION
  Report Type: Spontaneous
  Country: US (occurrence: US)
  Receive Date: 20161026
  Receipt Date: 20161026
  Transmission Date: 20170207
  Serious: Yes (Other)
  Sender: FDA-Public Use
  Company Number: US-PAR PHARMACEUTICAL, INC-2016SCPR015308

PATIENT

DRUGS (1)
  1. FENTANYL TRANSDERMAL SYSTEM [Suspect]
     Active Substance: FENTANYL
     Indication: PRODUCT USED FOR UNKNOWN INDICATION
     Dosage: UNK UNK, UNKNOWN,  EXPOSED TO THE CONTENTS THROUGH HER FINGERS
     Route: 050

REACTIONS (4)
  - Accidental exposure to product [Unknown]
  - Insomnia [Unknown]
  - Somnolence [Unknown]
  - Respiratory depression [Unknown]
